FAERS Safety Report 14786770 (Version 3)
Quarter: 2020Q1

REPORT INFORMATION
  Report Type: Spontaneous
  Country: US (occurrence: US)
  Receive Date: 20180420
  Receipt Date: 20200211
  Transmission Date: 20200409
  Serious: No
  Sender: FDA-Public Use
  Company Number: US-VIFOR (INTERNATIONAL) INC.-VIT-2018-03658

PATIENT
  Age: 85 Year
  Sex: Female

DRUGS (10)
  1. VELTASSA [Suspect]
     Active Substance: PATIROMER
     Indication: HYPERKALAEMIA
     Route: 048
     Dates: start: 20180301
  2. VITAMIN D [Concomitant]
     Active Substance: VITAMIN D NOS
  3. COLACE [Concomitant]
     Active Substance: DOCUSATE SODIUM
  4. REGLAN [Concomitant]
     Active Substance: METOCLOPRAMIDE HYDROCHLORIDE
  5. ASPIRIN. [Concomitant]
     Active Substance: ASPIRIN
  6. MULTIVITAMINS [Concomitant]
     Active Substance: VITAMINS
  7. GABAPENTIN. [Concomitant]
     Active Substance: GABAPENTIN
  8. ZOCOR [Concomitant]
     Active Substance: SIMVASTATIN
  9. GLIPIZIDE. [Concomitant]
     Active Substance: GLIPIZIDE
  10. NORCO [Concomitant]
     Active Substance: ACETAMINOPHEN\HYDROCODONE BITARTRATE

REACTIONS (5)
  - Product dose omission [Unknown]
  - Decreased appetite [Not Recovered/Not Resolved]
  - Erythema [Unknown]
  - Inappropriate schedule of product administration [Unknown]
  - Influenza [Not Recovered/Not Resolved]

NARRATIVE: CASE EVENT DATE: 2018
